FAERS Safety Report 22590364 (Version 1)
Quarter: 2023Q2

REPORT INFORMATION
  Report Type: Spontaneous
  Country: CN (occurrence: CN)
  Receive Date: 20230612
  Receipt Date: 20230612
  Transmission Date: 20230721
  Serious: Yes (Other)
  Sender: FDA-Public Use
  Company Number: CN-002147023-NVSC2023CN132443

PATIENT
  Age: 76 Year
  Sex: Male
  Weight: 76 kg

DRUGS (1)
  1. TEGRETOL [Suspect]
     Active Substance: CARBAMAZEPINE
     Indication: Headache
     Dosage: 0.2 G, BID
     Route: 048
     Dates: start: 20230526, end: 20230526

REACTIONS (7)
  - Headache [Recovered/Resolved]
  - Tachypnoea [Unknown]
  - Blood pressure abnormal [Unknown]
  - Pallor [Unknown]
  - Tachycardia [Unknown]
  - Nausea [Unknown]
  - Off label use [Unknown]

NARRATIVE: CASE EVENT DATE: 20230526
